FAERS Safety Report 8106913-1 (Version None)
Quarter: 2012Q1

REPORT INFORMATION
  Report Type: 
  Country: None (occurrence: None)
  Receive Date: 20120202
  Receipt Date: 20120127
  Transmission Date: 20120608
  Serious: Yes (Hospitalization)
  Sender: FDA-Public Use
  Company Number: SE-TEVA-319977ISR

PATIENT
  Sex: Female

DRUGS (1)
  1. OXALIPLATIN [Suspect]
     Indication: RECTAL NEOPLASM
     Route: 041
     Dates: start: 20111117, end: 20111117

REACTIONS (1)
  - AGRANULOCYTOSIS [None]
